FAERS Safety Report 22147043 (Version 1)
Quarter: 2023Q1

REPORT INFORMATION
  Report Type: Spontaneous
  Country: US (occurrence: None)
  Receive Date: 20230327
  Receipt Date: 20230327
  Transmission Date: 20230417
  Serious: Yes (Hospitalization)
  Sender: FDA-Public Use
  Company Number: None

PATIENT
  Sex: Male

DRUGS (15)
  1. INVEGA SUSTENNA [Suspect]
     Active Substance: PALIPERIDONE PALMITATE
     Indication: Schizophrenia
     Route: 030
     Dates: start: 20230228
  2. ARIPIPRAZOLE [Concomitant]
     Active Substance: ARIPIPRAZOLE
  3. BENZTROPINE TAB [Concomitant]
  4. DICYCLOMINE CAP [Concomitant]
  5. ENALAPRIL TAB [Concomitant]
  6. LORAZEPAM TAB [Concomitant]
  7. METHYLPRED TAB [Concomitant]
  8. METOPROL SUC [Concomitant]
  9. METOPROL SUC [Concomitant]
  10. OLANZAPINE [Concomitant]
     Active Substance: OLANZAPINE
  11. OLANZAPINE TAB [Concomitant]
  12. PALIPERIDONE TAB [Concomitant]
  13. PANTOPRAZOLE TAB [Concomitant]
  14. RISPERIDONE TAB [Concomitant]
  15. SERTRALINE [Concomitant]
     Active Substance: SERTRALINE HYDROCHLORIDE

REACTIONS (1)
  - Therapy interrupted [None]
